FAERS Safety Report 17287133 (Version 2)
Quarter: 2020Q1

REPORT INFORMATION
  Report Type: Spontaneous
  Country: DE (occurrence: DE)
  Receive Date: 20200120
  Receipt Date: 20200205
  Transmission Date: 20200409
  Serious: Yes (Death, Other)
  Sender: FDA-Public Use
  Company Number: DE-ABBVIE-20K-062-3238689-00

PATIENT
  Age: 61 Year
  Sex: Male
  Weight: 114 kg

DRUGS (4)
  1. CHOLECALCIFEROL [Concomitant]
     Active Substance: CHOLECALCIFEROL
     Indication: VITAMIN D DEFICIENCY
     Route: 065
     Dates: start: 20141030, end: 20191024
  2. ALLOPURINOL. [Concomitant]
     Active Substance: ALLOPURINOL
     Indication: PRODUCT USED FOR UNKNOWN INDICATION
     Dates: start: 20140828, end: 20191024
  3. COTRIMOXAZOL [Concomitant]
     Active Substance: SULFAMETHOXAZOLE\TRIMETHOPRIM
     Indication: PRODUCT USED FOR UNKNOWN INDICATION
     Dates: start: 20140829, end: 20191024
  4. IMBRUVICA [Suspect]
     Active Substance: IBRUTINIB
     Indication: CHRONIC LYMPHOCYTIC LEUKAEMIA
     Route: 048
     Dates: start: 20190613, end: 20191024

REACTIONS (1)
  - Death [Fatal]
